FAERS Safety Report 23334861 (Version 1)
Quarter: 2023Q4

REPORT INFORMATION
  Report Type: Spontaneous
  Country: CN (occurrence: CN)
  Receive Date: 20231224
  Receipt Date: 20231224
  Transmission Date: 20240110
  Serious: Yes (Other)
  Sender: FDA-Public Use
  Company Number: None

PATIENT
  Age: 58 Year
  Sex: Female
  Weight: 51 kg

DRUGS (7)
  1. CYCLOPHOSPHAMIDE [Suspect]
     Active Substance: CYCLOPHOSPHAMIDE
     Indication: Lung neoplasm malignant
     Dosage: 0.8 G, ONE TIME IN ONE DAY, DILUTED WITH SODIUM CHLORIDE (LISOFT DOUBLE VALVE) (40 ML), D1, SYSTEMIC
     Route: 042
     Dates: start: 20231205, end: 20231205
  2. SODIUM CHLORIDE [Suspect]
     Active Substance: SODIUM CHLORIDE
     Indication: Medication dilution
     Dosage: 40ML (LISOFT DOUBLE VALVE), ONE TIME IN ONE DAY, USED TO DILUTE CYCLOPHOSPHAMIDE (0.8 G) (ROUTE: IV
     Route: 042
     Dates: start: 20231205, end: 20231205
  3. SODIUM CHLORIDE [Suspect]
     Active Substance: SODIUM CHLORIDE
     Dosage: 30ML (VERTICAL SOFT DOUBLE VALVE), ONE TIME IN ONE DAY, USED TO DILUTE EPIRUBICIN HYDROCHLORIDE (50
     Route: 042
     Dates: start: 20231205, end: 20231206
  4. SODIUM CHLORIDE [Suspect]
     Active Substance: SODIUM CHLORIDE
     Dosage: 250 ML (LISOFT DOUBLE VALVE), ONE TIME IN ONE DAY, USED TO DILUTE BEVACIZUMAB (300 MG)
     Route: 041
     Dates: start: 20231205, end: 20231205
  5. EPIRUBICIN HYDROCHLORIDE [Suspect]
     Active Substance: EPIRUBICIN HYDROCHLORIDE
     Indication: Lung neoplasm malignant
     Dosage: 50 MG, ONE TIME IN ONE DAY, DILUTED WITH SODIUM CHLORIDE (VERTICAL SOFT DOUBLE VALVE)  (30 ML), D1-2
     Route: 042
     Dates: start: 20231205, end: 20231206
  6. OSIMERTINIB MESYLATE [Suspect]
     Active Substance: OSIMERTINIB MESYLATE
     Indication: Lung neoplasm malignant
     Dosage: 80 MG, ONE TIME IN ONE DAY, TARGETED THERAPY
     Route: 048
     Dates: start: 20231205, end: 20231207
  7. BEVACIZUMAB [Suspect]
     Active Substance: BEVACIZUMAB
     Indication: Lung neoplasm malignant
     Dosage: 300 MG, ONE TIME IN ONE DAY, DILUTED WITH SODIUM CHLORIDE (LISOFT DOUBLE VALVE) (250 ML), D1, SYSTEM
     Route: 041
     Dates: start: 20231205, end: 20231205

REACTIONS (5)
  - Myelosuppression [Unknown]
  - Discomfort [Unknown]
  - Vomiting [Recovered/Resolved]
  - Decreased appetite [Recovering/Resolving]
  - Nausea [Unknown]

NARRATIVE: CASE EVENT DATE: 20231206
